FAERS Safety Report 17876534 (Version 1)
Quarter: 2020Q2

REPORT INFORMATION
  Report Type: Report from Study
  Country: ES (occurrence: ES)
  Receive Date: 20200609
  Receipt Date: 20200609
  Transmission Date: 20200714
  Serious: Yes (Other)
  Sender: FDA-Public Use
  Company Number: ES-UCBSA-2020022191

PATIENT

DRUGS (1)
  1. BRIVARACETAM [Suspect]
     Active Substance: BRIVARACETAM
     Indication: SEIZURE
     Dosage: MEAN DOSE OF 25-200 MILLIGRAM ON FIRST DAY

REACTIONS (48)
  - Hallucination, visual [Unknown]
  - Somnolence [Unknown]
  - Dizziness [Unknown]
  - Weight increased [Unknown]
  - Disturbance in attention [Unknown]
  - Tic [Unknown]
  - Drug ineffective [Unknown]
  - Psychotic disorder [Unknown]
  - Respiratory depression [Unknown]
  - Vision blurred [Unknown]
  - Myoclonus [Unknown]
  - Fall [Unknown]
  - Abdominal pain upper [Unknown]
  - Salivary hypersecretion [Unknown]
  - Phonophobia [Unknown]
  - Cough [Unknown]
  - Fatigue [Unknown]
  - Depression [Unknown]
  - Paraesthesia oral [Unknown]
  - Myalgia [Unknown]
  - Alopecia [Unknown]
  - Weight decreased [Unknown]
  - Decreased appetite [Unknown]
  - Renal colic [Unknown]
  - Confusional state [Unknown]
  - Erectile dysfunction [Unknown]
  - Skin disorder [Unknown]
  - Nervousness [Unknown]
  - Seizure [Unknown]
  - Aggression [Unknown]
  - Insomnia [Unknown]
  - Vomiting [Unknown]
  - Oral disorder [Unknown]
  - Increased appetite [Unknown]
  - Dysgeusia [Unknown]
  - Gingival bleeding [Unknown]
  - Libido disorder [Unknown]
  - Memory impairment [Unknown]
  - Headache [Unknown]
  - Abnormal behaviour [Unknown]
  - Urinary tract disorder [Unknown]
  - Constipation [Unknown]
  - Influenza [Unknown]
  - Anxiety [Unknown]
  - Nausea [Unknown]
  - Ataxia [Unknown]
  - Nasopharyngitis [Unknown]
  - Restlessness [Unknown]
